FAERS Safety Report 18485542 (Version 4)
Quarter: 2021Q3

REPORT INFORMATION
  Report Type: Report from Study
  Country: US (occurrence: US)
  Receive Date: 20201110
  Receipt Date: 20210806
  Transmission Date: 20211014
  Serious: No
  Sender: FDA-Public Use
  Company Number: US-BIOVITRUM-2020US4182

PATIENT
  Sex: Male

DRUGS (3)
  1. KINERET [Suspect]
     Active Substance: ANAKINRA
     Indication: IMMUNODEFICIENCY
     Route: 058
     Dates: start: 201812
  2. KINERET [Suspect]
     Active Substance: ANAKINRA
     Indication: ARTHRITIS BACTERIAL
     Route: 058
     Dates: start: 2013
  3. KINERET [Suspect]
     Active Substance: ANAKINRA
     Indication: ACNE
     Route: 058
     Dates: start: 20181229

REACTIONS (7)
  - Syringe issue [Unknown]
  - Off label use [Not Recovered/Not Resolved]
  - COVID-19 [Unknown]
  - Acne cystic [Unknown]
  - Pain [Unknown]
  - Attention deficit hyperactivity disorder [Unknown]
  - Muscle spasms [Unknown]

NARRATIVE: CASE EVENT DATE: 2013
